FAERS Safety Report 8552097-5 (Version None)
Quarter: 2012Q3

REPORT INFORMATION
  Report Type: 
  Country: None (occurrence: None)
  Receive Date: 20120731
  Receipt Date: 20120723
  Transmission Date: 20120928
  Serious: No
  Sender: FDA-Public Use
  Company Number: US-BIOGENIDEC-2012BI025827

PATIENT
  Age: 44 Year
  Sex: Female

DRUGS (1)
  1. TYSABRI [Suspect]
     Indication: MULTIPLE SCLEROSIS
     Route: 042
     Dates: start: 20100714

REACTIONS (8)
  - MENTAL DISORDER [None]
  - MOBILITY DECREASED [None]
  - MULTIPLE SCLEROSIS [None]
  - BLADDER OPERATION [None]
  - VEIN DISORDER [None]
  - GAIT DISTURBANCE [None]
  - TEMPERATURE INTOLERANCE [None]
  - TYPE 2 DIABETES MELLITUS [None]
